FAERS Safety Report 7052227-0 (Version None)
Quarter: 2010Q4

REPORT INFORMATION
  Report Type: 
  Country: None (occurrence: None)
  Receive Date: 20101019
  Receipt Date: 20101012
  Transmission Date: 20110411
  Serious: Yes (Other)
  Sender: FDA-Public Use
  Company Number: US-JNJCH-2010023415

PATIENT
  Age: 32 Year
  Sex: Male
  Weight: 99.8 kg

DRUGS (1)
  1. ROGAINE [Suspect]
     Indication: ALOPECIA
     Dosage: TEXT:TWO TIMES PER DAY
     Route: 061

REACTIONS (2)
  - APPLICATION SITE PAIN [None]
  - BLISTER [None]
